FAERS Safety Report 18268683 (Version 1)
Quarter: 2020Q3

REPORT INFORMATION
  Report Type: Spontaneous
  Country: GB (occurrence: GB)
  Receive Date: 20200915
  Receipt Date: 20200915
  Transmission Date: 20201103
  Serious: Yes (Life-Threatening, Hospitalization, Disabling, Other)
  Sender: FDA-Public Use
  Company Number: GB-MYLANLABS-2020M1077645

PATIENT
  Age: 95 Year
  Sex: Female

DRUGS (3)
  1. WARFARIN [Suspect]
     Active Substance: WARFARIN
     Indication: ATRIAL FIBRILLATION
     Dosage: 1.5 MILLIGRAM, QD
     Route: 048
  2. MICONAZOLE. [Interacting]
     Active Substance: MICONAZOLE
     Indication: GROIN INFECTION
     Dosage: MDU
     Route: 061
  3. MICONAZOLE. [Interacting]
     Active Substance: MICONAZOLE
     Dosage: UNK UNK, PRN (AS REQUIRED)
     Route: 061

REACTIONS (7)
  - Drug monitoring procedure not performed [Unknown]
  - International normalised ratio increased [Not Recovered/Not Resolved]
  - Dysarthria [Unknown]
  - Cerebral haemorrhage [Unknown]
  - Abnormal behaviour [Unknown]
  - Agitation [Unknown]
  - Drug interaction [Unknown]
